FAERS Safety Report 6106718-7 (Version None)
Quarter: 2009Q1

REPORT INFORMATION
  Report Type: 
  Country: None (occurrence: None)
  Receive Date: 20090305
  Receipt Date: 20090224
  Transmission Date: 20090719
  Serious: Yes (Other)
  Sender: FDA-Public Use
  Company Number: 201797

PATIENT
  Sex: Male

DRUGS (2)
  1. BLEOMYCIN SULFATE [Suspect]
     Indication: CRANIOPHARYNGIOMA
     Dosage: 12 MG
  2. THERAPEUTIC RADIOPHARMACEUTICALS [Suspect]
     Indication: CRANIOPHARYNGIOMA
     Dosage: SEE IMAGE

REACTIONS (3)
  - CAROTID ARTERY ANEURYSM [None]
  - CAROTID ARTERY STENOSIS [None]
  - RADIATION INTERACTION [None]
